FAERS Safety Report 5797339-4 (Version None)
Quarter: 2008Q2

REPORT INFORMATION
  Report Type: 
  Country: None (occurrence: None)
  Receive Date: 20080627
  Receipt Date: 20080616
  Transmission Date: 20081010
  Serious: Yes (Hospitalization)
  Sender: FDA-Public Use
  Company Number: 2008AL007360

PATIENT
  Age: 54 Year
  Sex: Female

DRUGS (3)
  1. DICLOFENAC SODIUM [Suspect]
     Indication: TOOTH EXTRACTION
     Dosage: ; PO
     Route: 048
  2. FEVERALL [Suspect]
     Indication: TOOTH EXTRACTION
     Dosage: 650MG ;
     Route: 054
  3. HERBAL REMEDIES [Concomitant]

REACTIONS (2)
  - ABDOMINAL PAIN [None]
  - HEPATITIS TOXIC [None]
